FAERS Safety Report 21420491 (Version 1)
Quarter: 2022Q4

REPORT INFORMATION
  Report Type: Spontaneous
  Country: US (occurrence: US)
  Receive Date: 20221007
  Receipt Date: 20221007
  Transmission Date: 20230112
  Serious: No
  Sender: FDA-Public Use
  Company Number: US-SA-SAC20221001000028

PATIENT
  Age: 61 Year

DRUGS (8)
  1. AUBAGIO [Suspect]
     Active Substance: TERIFLUNOMIDE
     Indication: Multiple sclerosis
     Dosage: 14MG, QD
     Route: 048
     Dates: start: 20180630
  2. ATORVASTATIN [Concomitant]
     Active Substance: ATORVASTATIN
  3. THEOPHYLLINE [Concomitant]
     Active Substance: THEOPHYLLINE
  4. LEVOTHYROXINE [Concomitant]
     Active Substance: LEVOTHYROXINE
  5. ASPIRIN [Concomitant]
     Active Substance: ASPIRIN
  6. SERTRALINE [Concomitant]
     Active Substance: SERTRALINE HYDROCHLORIDE
  7. ROPINIROLE [Concomitant]
     Active Substance: ROPINIROLE
  8. VITAMIN D NOS [Concomitant]
     Active Substance: VITAMIN D NOS

REACTIONS (1)
  - Visual impairment [Unknown]
